FAERS Safety Report 5263707-2 (Version None)
Quarter: 2007Q1

REPORT INFORMATION
  Report Type: 
  Country: None (occurrence: None)
  Receive Date: 20070312
  Receipt Date: 20070312
  Transmission Date: 20070707
  Serious: Yes (Hospitalization, Other)
  Sender: FDA-Public Use
  Company Number: None

PATIENT
  Age: 6 Year
  Sex: Female
  Weight: 22.3 kg

DRUGS (3)
  1. TRIAMINIC COUGH AND COLD BERRY CHEWABLE TABS TRIAMINIC [Suspect]
     Indication: COUGH
     Dosage: 2 TABS EVERY 6 HOURS PO
     Route: 048
     Dates: start: 20070304, end: 20070304
  2. TRIAMINIC COUGH AND COLD BERRY CHEWABLE TABS TRIAMINIC [Suspect]
     Indication: EYE PRURITUS
     Dosage: 2 TABS EVERY 6 HOURS PO
     Route: 048
     Dates: start: 20070304, end: 20070304
  3. TRIAMINIC COUGH AND COLD BERRY CHEWABLE TABS TRIAMINIC [Suspect]
     Indication: RHINORRHOEA
     Dosage: 2 TABS EVERY 6 HOURS PO
     Route: 048
     Dates: start: 20070304, end: 20070304

REACTIONS (1)
  - GRAND MAL CONVULSION [None]
